FAERS Safety Report 8152865-8 (Version None)
Quarter: 2012Q1

REPORT INFORMATION
  Report Type: 
  Country: None (occurrence: None)
  Receive Date: 20120221
  Receipt Date: 20120209
  Transmission Date: 20120608
  Serious: Yes (Life-Threatening, Hospitalization)
  Sender: FDA-Public Use
  Company Number: FR-GILEAD-2008-0017227

PATIENT
  Sex: Male

DRUGS (3)
  1. EMTRICITABINE AND TENOFOVIR DISOPROXIL FUMARATE [Suspect]
     Indication: HIV INFECTION
     Route: 048
     Dates: start: 20080520
  2. KALETRA [Concomitant]
     Indication: HIV INFECTION
     Dosage: 4 DF, BID
     Route: 048
     Dates: start: 20080520
  3. BACTRIM [Concomitant]
     Indication: PROPHYLAXIS
     Dosage: 1 DF, QD
     Route: 048
     Dates: start: 20080409

REACTIONS (2)
  - NEUROPATHY PERIPHERAL [None]
  - PULMONARY EMBOLISM [None]
